FAERS Safety Report 7139346-5 (Version None)
Quarter: 2010Q4

REPORT INFORMATION
  Report Type: 
  Country: None (occurrence: None)
  Receive Date: 20101206
  Receipt Date: 20100901
  Transmission Date: 20110411
  Serious: Yes (Other)
  Sender: FDA-Public Use
  Company Number: US-PURDUE-USA-2010-0056503

PATIENT
  Sex: Female
  Weight: 149.66 kg

DRUGS (3)
  1. OXYCONTIN [Suspect]
     Indication: SKIN DISORDER
     Dosage: UNK
  2. OXYCONTIN [Suspect]
     Indication: BACK PAIN
  3. OXYCONTIN [Suspect]
     Indication: NEUROPATHY PERIPHERAL

REACTIONS (2)
  - OSTEODYSTROPHY [None]
  - RENAL IMPAIRMENT [None]
